FAERS Safety Report 5290465-8 (Version None)
Quarter: 2007Q2

REPORT INFORMATION
  Report Type: 
  Country: None (occurrence: None)
  Receive Date: 20070409
  Receipt Date: 20070327
  Transmission Date: 20071010
  Serious: Yes (Other)
  Sender: FDA-Public Use
  Company Number: PHEH2007US03613

PATIENT
  Age: 71 Year
  Sex: Male

DRUGS (4)
  1. EXELON [Suspect]
     Indication: AMNESIA
     Dosage: 1.5 MG, QD
     Route: 048
     Dates: start: 20020101
  2. EXELON [Suspect]
     Dosage: 6 MG, BID
     Route: 048
  3. LIPITOR [Concomitant]
  4. ALTACE [Concomitant]

REACTIONS (3)
  - CONFUSIONAL STATE [None]
  - DIZZINESS [None]
  - DRUG WITHDRAWAL SYNDROME [None]
